FAERS Safety Report 5943686-2 (Version None)
Quarter: 2008Q4

REPORT INFORMATION
  Report Type: 
  Country: None (occurrence: None)
  Receive Date: 20081104
  Receipt Date: 20081012
  Transmission Date: 20090506
  Serious: Yes (Death)
  Sender: FDA-Public Use
  Company Number: CHPA2008US17985

PATIENT
  Age: 66 Year
  Sex: Male

DRUGS (4)
  1. ASPIRIN [Suspect]
     Dosage: ORAL
     Route: 048
  2. DOXEPIN HCL [Suspect]
     Dosage: ORAL
     Route: 048
  3. CITALOPRAM HYDROBROMIDE [Suspect]
     Dosage: ORAL
     Route: 048
  4. ACETAMINOPHEN [Suspect]
     Dosage: ORAL
     Route: 048

REACTIONS (1)
  - DEATH [None]
